FAERS Safety Report 8181161-8 (Version None)
Quarter: 2012Q1

REPORT INFORMATION
  Report Type: 
  Country: None (occurrence: None)
  Receive Date: 20120302
  Receipt Date: 20120227
  Transmission Date: 20120608
  Serious: Yes (Other)
  Sender: FDA-Public Use
  Company Number: US-GLAXOSMITHKLINE-A0962998A

PATIENT
  Sex: Male

DRUGS (2)
  1. XOLAIR [Concomitant]
  2. ADVAIR DISKUS 100/50 [Suspect]

REACTIONS (2)
  - PULMONARY EMBOLISM [None]
  - LUNG DISORDER [None]
